FAERS Safety Report 7321354-2 (Version None)
Quarter: 2011Q1

REPORT INFORMATION
  Report Type: 
  Country: None (occurrence: None)
  Receive Date: 20110228
  Receipt Date: 20100303
  Transmission Date: 20110831
  Serious: Yes (Other)
  Sender: FDA-Public Use
  Company Number: US-PFIZER INC-2010017908

PATIENT
  Sex: Female
  Weight: 61.224 kg

DRUGS (4)
  1. WELLBUTRIN [Concomitant]
     Dosage: UNK
  2. LUVOX [Concomitant]
     Dosage: UNK
  3. GEODON [Suspect]
     Indication: BIPOLAR DISORDER
     Dosage: 80 MG, 2X/DAY
     Dates: start: 20090803, end: 20091221
  4. PROZAC [Concomitant]
     Dosage: UNK

REACTIONS (1)
  - TREMOR [None]
